FAERS Safety Report 12060896 (Version 2)
Quarter: 2016Q1

REPORT INFORMATION
  Report Type: Spontaneous
  Country: BR (occurrence: BR)
  Receive Date: 20160210
  Receipt Date: 20160304
  Transmission Date: 20160526
  Serious: Yes (Hospitalization, Other)
  Sender: FDA-Public Use
  Company Number: BR-JNJFOC-20160104779

PATIENT
  Sex: Female

DRUGS (1)
  1. STELARA [Suspect]
     Active Substance: USTEKINUMAB
     Indication: PSORIASIS
     Route: 058

REACTIONS (4)
  - Pulmonary oedema [Unknown]
  - Cardiac operation [Unknown]
  - Gait disturbance [Unknown]
  - Dysphonia [Unknown]
